FAERS Safety Report 18649407 (Version 2)
Quarter: 2021Q1

REPORT INFORMATION
  Report Type: Spontaneous
  Country: TR (occurrence: TR)
  Receive Date: 20201222
  Receipt Date: 20210226
  Transmission Date: 20210419
  Serious: Yes (Hospitalization, Other)
  Sender: FDA-Public Use
  Company Number: TR-LUPIN PHARMACEUTICALS INC.-2020-06336

PATIENT
  Age: 21 Year
  Sex: Male
  Weight: 75 kg

DRUGS (7)
  1. MANNITOL. [Concomitant]
     Active Substance: MANNITOL
     Indication: INTRACRANIAL PRESSURE INCREASED
     Dosage: UNK
     Route: 065
  2. POTASSIUM [Suspect]
     Active Substance: POTASSIUM
     Dosage: UNK
  3. NOREPINEPHRINE. [Concomitant]
     Active Substance: NOREPINEPHRINE
     Indication: BLOOD PRESSURE MANAGEMENT
     Dosage: UNK
     Route: 065
  4. POTASSIUM [Suspect]
     Active Substance: POTASSIUM
     Indication: HYPOKALAEMIA
     Dosage: UNK
     Route: 042
  5. THIOPENTONE SODIUM [Concomitant]
     Active Substance: THIOPENTAL SODIUM
     Indication: INTRACRANIAL PRESSURE INCREASED
     Dosage: 3 MILLIGRAM/KILOGRAM PER HOUR (DISCONTINUED)
     Route: 065
  6. CALCIUM [Suspect]
     Active Substance: CALCIUM
     Indication: HYPERKALAEMIA
     Dosage: UNK
     Route: 042
  7. ALBUTEROL [SALBUTAMOL] [Suspect]
     Active Substance: ALBUTEROL
     Indication: HYPERKALAEMIA
     Dosage: UNK (NEBULISED SALBUTAMOL)
     Route: 065

REACTIONS (3)
  - Drug ineffective for unapproved indication [Unknown]
  - Off label use [Unknown]
  - Hyperkalaemia [Recovered/Resolved]
